FAERS Safety Report 19673211 (Version 1)
Quarter: 2021Q3

REPORT INFORMATION
  Report Type: Spontaneous
  Country: US (occurrence: US)
  Receive Date: 20210809
  Receipt Date: 20210809
  Transmission Date: 20211014
  Serious: Yes (Other)
  Sender: FDA-Public Use
  Company Number: US-DRREDDYS-LIT/USA/21/0138530

PATIENT
  Age: 61 Year
  Sex: Female

DRUGS (2)
  1. DOBUTAMINE HYDROCHLORIDE. [Suspect]
     Active Substance: DOBUTAMINE HYDROCHLORIDE
     Indication: CARDIAC STRESS TEST
     Dosage: DOBUTAMINE INFUSION 10 MICROGRAM/KG/MIN
  2. DOBUTAMINE HYDROCHLORIDE. [Suspect]
     Active Substance: DOBUTAMINE HYDROCHLORIDE
     Dosage: THE RATE OF DOBUTAMINE INFUSION WAS INCREASED TO 20 MICRO GRAM /KG/MIN

REACTIONS (3)
  - Cardiac arrest [Recovered/Resolved]
  - Sinus bradycardia [Recovered/Resolved]
  - Bezold-Jarisch reflex [Recovered/Resolved]
